APPROVED DRUG PRODUCT: NEBIVOLOL HYDROCHLORIDE
Active Ingredient: NEBIVOLOL HYDROCHLORIDE
Strength: EQ 20MG BASE
Dosage Form/Route: TABLET;ORAL
Application: A203825 | Product #004 | TE Code: AB
Applicant: HETERO LABS LTD UNIT III
Approved: Nov 3, 2020 | RLD: No | RS: No | Type: RX